FAERS Safety Report 7013058-0 (Version None)
Quarter: 2010Q3

REPORT INFORMATION
  Report Type: 
  Country: None (occurrence: None)
  Receive Date: 20100924
  Receipt Date: 20100913
  Transmission Date: 20110219
  Serious: Yes (Other)
  Sender: FDA-Public Use
  Company Number: US-PFIZER INC-2010116566

PATIENT
  Sex: Female
  Weight: 84 kg

DRUGS (9)
  1. AROMASIN [Suspect]
     Indication: BREAST CANCER
     Dosage: 25 MG, 1X/DAY
     Dates: start: 20100101
  2. CALCIUM WITH VITAMIN D [Suspect]
     Dosage: UNK
     Dates: start: 20100101
  3. LORAZEPAM [Concomitant]
     Dosage: 1 MG, 3X/DAY
  4. PROPRANOLOL [Concomitant]
     Dosage: 20 MG, 3X/DAY
  5. BENAZEPRIL [Concomitant]
     Dosage: 5 MG, UNK
  6. UREX [Concomitant]
     Dosage: UNK
  7. FISH OIL [Concomitant]
     Dosage: UNK
  8. VITAMIN E [Concomitant]
     Dosage: UNK
  9. CENTRUM SILVER [Concomitant]
     Dosage: UNK

REACTIONS (5)
  - ASTHENIA [None]
  - CONSTIPATION [None]
  - DIARRHOEA [None]
  - FATIGUE [None]
  - WEIGHT INCREASED [None]
